FAERS Safety Report 5052884-4 (Version None)
Quarter: 2006Q3

REPORT INFORMATION
  Report Type: 
  Country: None (occurrence: None)
  Receive Date: 20060712
  Receipt Date: 20060627
  Transmission Date: 20061208
  Serious: Yes (Hospitalization)
  Sender: FDA-Public Use
  Company Number: 2006S1005909

PATIENT
  Age: 56 Year
  Sex: Male

DRUGS (11)
  1. OXALIPLATIN (85 MG/M**2) [Suspect]
     Indication: PANCREATIC NEOPLASM
     Dosage: 170 MCG; Q2W; IV
     Route: 042
     Dates: start: 20060530, end: 20060530
  2. BEVACIZUMAB (5 MG/KG) [Suspect]
     Indication: PANCREATIC NEOPLASM
     Dosage: 400 MG; Q2W; IV
     Route: 042
     Dates: start: 20060530, end: 20060530
  3. FLUOROURACIL [Suspect]
     Indication: PANCREATIC NEOPLASM
     Dosage: 800 MG; Q2W; IV;  2400 MG; Q2W; IV
     Route: 042
     Dates: start: 20060530, end: 20060530
  4. FLUOROURACIL [Suspect]
     Indication: PANCREATIC NEOPLASM
     Dosage: 800 MG; Q2W; IV;  2400 MG; Q2W; IV
     Route: 042
     Dates: start: 20060530, end: 20060530
  5. LEUCOVORIN CALCIUM [Suspect]
     Indication: PANCREATIC NEOPLASM
     Dosage: 400 MG; Q2W; IV
     Route: 042
     Dates: start: 20060530, end: 20060530
  6. DEXAMETHASONE TAB [Suspect]
     Indication: PANCREATIC NEOPLASM
     Dosage: 20 MG; Q2W; IV
     Route: 042
     Dates: start: 20060530, end: 20060530
  7. LORAZEPAM [Suspect]
     Indication: PANCREATIC NEOPLASM
     Dosage: 1 MG; Q2W; PO
     Route: 048
     Dates: start: 20060530, end: 20060530
  8. GRANISETRON (10 UG/KG) [Suspect]
     Indication: PANCREATIC NEOPLASM
     Dosage: 800 UG; Q2W; IV
     Route: 042
     Dates: start: 20060530, end: 20060530
  9. ACETAMINOPHEN (CON.) [Concomitant]
  10. LOPERAMIDE HCL (CON.) [Concomitant]
  11. LORAZEPAM (CON.) [Concomitant]

REACTIONS (1)
  - PYREXIA [None]
